FAERS Safety Report 12859260 (Version 1)
Quarter: 2016Q4

REPORT INFORMATION
  Report Type: Not Available
  Country: None (occurrence: US)
  Receive Date: 20161018
  Receipt Date: 20161018
  Transmission Date: 20170207
  Serious: No
  Sender: FDA-Public Use
  Company Number: US-AKORN-33172

PATIENT
  Age: 81 Year
  Sex: Male
  Weight: 240 kg

DRUGS (1)
  1. LIDOCAINE 2.5% AND PRILOCAINE 2.5% CREAM [Suspect]
     Active Substance: LIDOCAINE\PRILOCAINE

REACTIONS (1)
  - Drug ineffective [None]
